FAERS Safety Report 25109997 (Version 1)
Quarter: 2025Q1

REPORT INFORMATION
  Report Type: Spontaneous
  Country: US (occurrence: US)
  Receive Date: 20250324
  Receipt Date: 20250324
  Transmission Date: 20250409
  Serious: No
  Sender: ROCHE
  Company Number: US-ROCHE-10000231982

PATIENT
  Age: 66 Year
  Sex: Male
  Weight: 84.9 kg

DRUGS (6)
  1. ACTEMRA [Suspect]
     Active Substance: TOCILIZUMAB
     Indication: Corneal degeneration
     Route: 058
  2. TEMAZEPAM [Concomitant]
     Active Substance: TEMAZEPAM
  3. MURO 128 [Concomitant]
     Active Substance: SODIUM CHLORIDE
  4. ATORVASTATIN [Concomitant]
     Active Substance: ATORVASTATIN
  5. PAROXETINE [Concomitant]
     Active Substance: PAROXETINE
  6. FINASTERIDE [Concomitant]
     Active Substance: FINASTERIDE

REACTIONS (4)
  - Off label use [Unknown]
  - Iridocyclitis [Unknown]
  - Macular degeneration [Unknown]
  - Marfan^s syndrome [Unknown]

NARRATIVE: CASE EVENT DATE: 20250312
